APPROVED DRUG PRODUCT: TAXOTERE
Active Ingredient: DOCETAXEL
Strength: 40MG/ML **Federal Register determination that product was not discontinued or withdrawn for safety or effectiveness reasons**
Dosage Form/Route: INJECTABLE;INJECTION
Application: N020449 | Product #001
Applicant: SANOFI AVENTIS US LLC
Approved: May 14, 1996 | RLD: Yes | RS: No | Type: DISCN